FAERS Safety Report 6316099-1 (Version None)
Quarter: 2009Q3

REPORT INFORMATION
  Report Type: 
  Country: None (occurrence: None)
  Receive Date: 20090820
  Receipt Date: 20090813
  Transmission Date: 20100115
  Serious: Yes (Other)
  Sender: FDA-Public Use
  Company Number: PHEH2009US09371

PATIENT
  Sex: Male
  Weight: 113.38 kg

DRUGS (4)
  1. TRILEPTAL [Suspect]
     Indication: EMOTIONAL DISORDER
     Dosage: UNK
     Route: 048
     Dates: start: 20051201, end: 20060101
  2. ADDERALL XR 5 [Suspect]
     Indication: ATTENTION DEFICIT/HYPERACTIVITY DISORDER
     Dosage: 40MG ONCE DAILY
     Dates: start: 20000101, end: 20051001
  3. ADDERALL XR 5 [Suspect]
     Dosage: 40MG
     Dates: start: 20051201, end: 20060101
  4. WELLBUTRIN [Suspect]
     Indication: EMOTIONAL DISORDER
     Dosage: UNK
     Route: 048
     Dates: start: 20051201, end: 20060101

REACTIONS (6)
  - ABNORMAL BEHAVIOUR [None]
  - DISTURBANCE IN ATTENTION [None]
  - EMOTIONAL DISORDER [None]
  - FEELING ABNORMAL [None]
  - INSOMNIA [None]
  - INTENTIONAL SELF-INJURY [None]
